FAERS Safety Report 13372361 (Version 1)
Quarter: 2017Q1

REPORT INFORMATION
  Report Type: Spontaneous
  Country: PT (occurrence: PT)
  Receive Date: 20170327
  Receipt Date: 20170327
  Transmission Date: 20170509
  Serious: Yes (Hospitalization)
  Sender: FDA-Public Use
  Company Number: PT-OC PHARMA-000001

PATIENT
  Age: 27 Year
  Sex: Female
  Weight: 83 kg

DRUGS (2)
  1. MINOCYCLINE [Suspect]
     Active Substance: MINOCYCLINE\MINOCYCLINE HYDROCHLORIDE
     Dosage: 100 MG/2TIMES/DAY, STARTED 7 DAYS PRIOR TO BEGINNING OF THE STUDY
     Dates: end: 1900
  2. LEVONORGESTREL. [Suspect]
     Active Substance: LEVONORGESTREL
     Indication: PRODUCT USED FOR UNKNOWN INDICATION
     Dosage: CARRIER OF INTRAUTERINE LEVONORGESTREL DEVICE (IUD-2) 2 YEARS AGO
     Route: 015

REACTIONS (1)
  - Intracranial pressure increased [Recovering/Resolving]
